FAERS Safety Report 7243641-9 (Version None)
Quarter: 2011Q1

REPORT INFORMATION
  Report Type: 
  Country: None (occurrence: None)
  Receive Date: 20110125
  Receipt Date: 20110118
  Transmission Date: 20110831
  Serious: Yes (Death)
  Sender: FDA-Public Use
  Company Number: PHHY2010CA16422

PATIENT
  Sex: Female
  Weight: 49.4 kg

DRUGS (10)
  1. EXELON [Suspect]
     Dosage: PATCH 10
     Route: 062
  2. AMLODIPINE [Concomitant]
     Dosage: UNK
  3. ATARAX [Concomitant]
  4. MEMANTINE HCL [Concomitant]
  5. TRAZODONE HCL [Concomitant]
  6. MONOCOR [Concomitant]
  7. EXELON [Suspect]
     Indication: DEMENTIA
     Dosage: PATCH 5
     Route: 062
     Dates: start: 20090409, end: 20100108
  8. VENLAFAXINE [Concomitant]
  9. ASPIRIN [Concomitant]
  10. IRBESARTAN [Concomitant]

REACTIONS (4)
  - DEATH [None]
  - DYSPEPSIA [None]
  - NAUSEA [None]
  - VOMITING [None]
